FAERS Safety Report 24111957 (Version 1)
Quarter: 2024Q3

REPORT INFORMATION
  Report Type: Spontaneous
  Country: US (occurrence: US)
  Receive Date: 20240718
  Receipt Date: 20240718
  Transmission Date: 20241017
  Serious: Yes (Hospitalization)
  Sender: PFIZER
  Company Number: US-PFIZER INC-202400216453

PATIENT
  Age: 60 Year
  Sex: Male

DRUGS (1)
  1. BOSULIF [Suspect]
     Active Substance: BOSUTINIB MONOHYDRATE
     Dosage: 400MG BY MOUTH DAILY
     Route: 048

REACTIONS (7)
  - Cardiac disorder [Unknown]
  - Chest discomfort [Unknown]
  - Chest pain [Unknown]
  - Pain in extremity [Unknown]
  - Dry skin [Unknown]
  - Erythema [Unknown]
  - Contusion [Unknown]
